FAERS Safety Report 24413169 (Version 3)
Quarter: 2024Q4

REPORT INFORMATION
  Report Type: Spontaneous
  Country: US (occurrence: US)
  Receive Date: 20241008
  Receipt Date: 20241019
  Transmission Date: 20250115
  Serious: Yes (Other)
  Sender: SANOFI AVENTIS
  Company Number: US-SA-2024SA289110

PATIENT
  Age: 57 Year

DRUGS (2)
  1. LANTUS [Suspect]
     Active Substance: INSULIN GLARGINE
     Indication: Blood glucose increased
     Dosage: 26U AM 36U PM
     Route: 058
  2. LANTUS [Suspect]
     Active Substance: INSULIN GLARGINE
     Dosage: 35U BID/ 45U QAM AND 18U QPM.
     Route: 058

REACTIONS (8)
  - Neuropathy peripheral [Unknown]
  - Tenderness [Unknown]
  - Sensory disturbance [Unknown]
  - Arthralgia [Unknown]
  - Neck pain [Unknown]
  - Memory impairment [Unknown]
  - Balance disorder [Unknown]
  - Off label use [Unknown]
